FAERS Safety Report 23388415 (Version 1)
Quarter: 2024Q1

REPORT INFORMATION
  Report Type: Spontaneous
  Country: US (occurrence: None)
  Receive Date: 20240110
  Receipt Date: 20240110
  Transmission Date: 20240410
  Serious: Yes (Hospitalization)
  Sender: FDA-Public Use
  Company Number: None

PATIENT
  Sex: Male
  Weight: 91.2 kg

DRUGS (2)
  1. ERBITUX [Suspect]
     Active Substance: CETUXIMAB
     Dates: end: 20231126
  2. ENCORAFENIB [Suspect]
     Active Substance: ENCORAFENIB
     Dates: end: 20240105

REACTIONS (8)
  - Fatigue [None]
  - Hypophagia [None]
  - Asthenia [None]
  - Asthenia [None]
  - Haemoperitoneum [None]
  - Iron deficiency anaemia [None]
  - Anaemia of chronic disease [None]
  - Gastrointestinal haemorrhage [None]

NARRATIVE: CASE EVENT DATE: 20240105
